FAERS Safety Report 9501987 (Version 3)
Quarter: 2013Q3

REPORT INFORMATION
  Report Type: Spontaneous
  Country: US (occurrence: US)
  Receive Date: 20130905
  Receipt Date: 20130910
  Transmission Date: 20140515
  Serious: Yes (Other)
  Sender: FDA-Public Use
  Company Number: US-PFIZER INC-2012258248

PATIENT
  Age: 64 Year
  Sex: Female
  Weight: 90.7 kg

DRUGS (5)
  1. CELEBREX [Suspect]
     Indication: SPONDYLITIS
     Dosage: 200 MG, 1X/DAY
     Route: 048
     Dates: start: 2011
  2. CELEBREX [Suspect]
     Indication: ARTHRITIS
  3. CELEBREX [Suspect]
     Indication: INFLAMMATION
  4. CELEBREX [Suspect]
     Indication: BACK PAIN
  5. TESSALON PERLES [Suspect]
     Dosage: 200 MG, 1X/DAY
     Route: 048
     Dates: start: 2011

REACTIONS (3)
  - Arthropathy [Unknown]
  - Arthritis [Unknown]
  - Musculoskeletal disorder [Unknown]
